FAERS Safety Report 25587429 (Version 2)
Quarter: 2025Q3

REPORT INFORMATION
  Report Type: Spontaneous
  Country: JP (occurrence: JP)
  Receive Date: 20250721
  Receipt Date: 20250728
  Transmission Date: 20251021
  Serious: No
  Sender: PFIZER
  Company Number: JP-MLMSERVICE-20250715-PI571290-00306-2

PATIENT
  Age: 66 Year
  Sex: Male

DRUGS (15)
  1. METHOTREXATE SODIUM [Suspect]
     Active Substance: METHOTREXATE SODIUM
     Indication: Prophylaxis against graft versus host disease
  2. TACROLIMUS [Concomitant]
     Active Substance: TACROLIMUS
     Indication: Immunosuppressant drug therapy
  3. TACROLIMUS [Concomitant]
     Active Substance: TACROLIMUS
  4. TACROLIMUS [Concomitant]
     Active Substance: TACROLIMUS
  5. FLUDARABINE [Concomitant]
     Active Substance: FLUDARABINE PHOSPHATE
     Indication: Acute myeloid leukaemia
     Dosage: DAYS -7 TO -2
  6. FLUDARABINE [Concomitant]
     Active Substance: FLUDARABINE PHOSPHATE
     Indication: Epstein-Barr virus infection
  7. FLUDARABINE [Concomitant]
     Active Substance: FLUDARABINE PHOSPHATE
     Indication: Haemophagocytic lymphohistiocytosis
  8. BUSULFAN [Concomitant]
     Active Substance: BUSULFAN
     Indication: Acute myeloid leukaemia
     Dosage: DAYS -7 TO -4
  9. BUSULFAN [Concomitant]
     Active Substance: BUSULFAN
     Indication: Epstein-Barr virus infection
  10. BUSULFAN [Concomitant]
     Active Substance: BUSULFAN
     Indication: Haemophagocytic lymphohistiocytosis
  11. MELPHALAN [Concomitant]
     Active Substance: MELPHALAN
     Indication: Acute myeloid leukaemia
     Dosage: DAYS -3 TO -2
  12. MELPHALAN [Concomitant]
     Active Substance: MELPHALAN
     Indication: Epstein-Barr virus infection
  13. MELPHALAN [Concomitant]
     Active Substance: MELPHALAN
     Indication: Haemophagocytic lymphohistiocytosis
  14. CYCLOSPORINE [Concomitant]
     Active Substance: CYCLOSPORINE
     Indication: Prophylaxis against graft versus host disease
  15. PREDNISOLONE [Concomitant]
     Active Substance: PREDNISOLONE
     Indication: Immunosuppressant drug therapy

REACTIONS (1)
  - Off label use [Unknown]
